FAERS Safety Report 8433378-2 (Version None)
Quarter: 2012Q2

REPORT INFORMATION
  Report Type: 
  Country: None (occurrence: None)
  Receive Date: 20120613
  Receipt Date: 20120608
  Transmission Date: 20120825
  Serious: Yes (Hospitalization, Disabling)
  Sender: FDA-Public Use
  Company Number: US-MERCK-1201USA02279

PATIENT
  Age: 60 Year
  Sex: Female

DRUGS (5)
  1. BONIVA [Suspect]
     Indication: OSTEOPOROSIS
     Route: 048
     Dates: start: 20060201, end: 20110801
  2. FOSAMAX [Suspect]
     Indication: OSTEOPOROSIS
     Route: 048
     Dates: start: 19990901, end: 20000601
  3. VITAMINS (UNSPECIFIED) [Concomitant]
     Route: 065
     Dates: start: 19920101
  4. FOSAMAX [Suspect]
     Route: 048
     Dates: start: 20000601, end: 20060201
  5. ALLEGRA-D 12 HOUR [Concomitant]
     Indication: HYPERSENSITIVITY
     Route: 065
     Dates: start: 20030101, end: 20060101

REACTIONS (8)
  - GASTROOESOPHAGEAL REFLUX DISEASE [None]
  - FEMUR FRACTURE [None]
  - CHRONIC OBSTRUCTIVE PULMONARY DISEASE [None]
  - ADVERSE EVENT [None]
  - HYPERTENSION [None]
  - SPINAL OSTEOARTHRITIS [None]
  - LOW TURNOVER OSTEOPATHY [None]
  - SPINAL CORD DISORDER [None]
